FAERS Safety Report 24879606 (Version 3)
Quarter: 2025Q2

REPORT INFORMATION
  Report Type: Report from Study
  Country: US (occurrence: US)
  Receive Date: 20250123
  Receipt Date: 20250606
  Transmission Date: 20250716
  Serious: Yes (Other)
  Sender: ABBVIE
  Company Number: US-ABBVIE-6095663

PATIENT
  Age: 83 Year
  Sex: Female

DRUGS (2)
  1. SKYRIZI [Suspect]
     Active Substance: RISANKIZUMAB-RZAA
     Indication: Psoriasis
     Route: 058
     Dates: start: 20240824
  2. SKYRIZI [Suspect]
     Active Substance: RISANKIZUMAB-RZAA
     Route: 058
     Dates: start: 202410

REACTIONS (9)
  - Skin cancer [Recovered/Resolved]
  - Precancerous skin lesion [Recovered/Resolved]
  - Illness [Recovered/Resolved]
  - Psoriasis [Recovered/Resolved]
  - Blister [Unknown]
  - Gait inability [Unknown]
  - Periarthritis [Not Recovered/Not Resolved]
  - Pain in extremity [Unknown]
  - Psoriasis [Not Recovered/Not Resolved]

NARRATIVE: CASE EVENT DATE: 20250102
